FAERS Safety Report 8156358-3 (Version None)
Quarter: 2012Q1

REPORT INFORMATION
  Report Type: 
  Country: None (occurrence: None)
  Receive Date: 20120222
  Receipt Date: 20120218
  Transmission Date: 20120608
  Serious: Yes (Disabling, Other)
  Sender: FDA-Public Use
  Company Number: US-PFIZER INC-2012043764

PATIENT
  Sex: Female
  Weight: 58.957 kg

DRUGS (1)
  1. LYRICA [Suspect]
     Indication: PAIN
     Dosage: 375 MG, UNK
     Route: 048
     Dates: end: 20120214

REACTIONS (9)
  - DRUG HYPERSENSITIVITY [None]
  - OVERDOSE [None]
  - DRY MOUTH [None]
  - BODY TEMPERATURE INCREASED [None]
  - RASH [None]
  - SOMNOLENCE [None]
  - BLINDNESS [None]
  - DIARRHOEA [None]
  - MEMORY IMPAIRMENT [None]
